FAERS Safety Report 24108900 (Version 2)
Quarter: 2024Q3

REPORT INFORMATION
  Report Type: Spontaneous
  Country: CA (occurrence: CA)
  Receive Date: 20240718
  Receipt Date: 20240719
  Transmission Date: 20241016
  Serious: Yes (Other)
  Sender: CELLTRION
  Company Number: CA-CELLTRION INC.-2023CA005847

PATIENT

DRUGS (6)
  1. YUFLYMA [Suspect]
     Active Substance: ADALIMUMAB-AATY
     Indication: Hidradenitis
     Dosage: 40 MG WEEKLY STARTING WEEK 4
     Route: 058
     Dates: start: 20230210, end: 20230314
  2. PERINDOPRIL [Concomitant]
     Active Substance: PERINDOPRIL
     Dosage: 6 MG, QD
  3. METOPROLOL [Concomitant]
     Active Substance: METOPROLOL
     Dosage: 50 MG, BID
  4. ASPIRIN [Concomitant]
     Active Substance: ASPIRIN
     Dosage: HALF OF AN ASPIRIN PER DAY
  5. ROSUVASTATIN [Concomitant]
     Active Substance: ROSUVASTATIN
     Dosage: 5 MG
  6. DUTASTERIDE [Concomitant]
     Active Substance: DUTASTERIDE
     Indication: Prostatomegaly
     Dosage: FOR HIS ENLARGED PROSTATE, STARTED THIS MED AFTER YUFLYMA THERAPY

REACTIONS (5)
  - Sepsis [Unknown]
  - Prostatomegaly [Not Recovered/Not Resolved]
  - Furuncle [Recovering/Resolving]
  - Product availability issue [Recovered/Resolved]
  - Therapy interrupted [Recovered/Resolved]

NARRATIVE: CASE EVENT DATE: 20230310
